FAERS Safety Report 11076334 (Version 2)
Quarter: 2015Q2

REPORT INFORMATION
  Report Type: Report from Study
  Country: JP (occurrence: JP)
  Receive Date: 20150429
  Receipt Date: 20150608
  Transmission Date: 20150821
  Serious: Yes (Congenital Anomaly, Other)
  Sender: FDA-Public Use
  Company Number: JP-ASTRAZENECA-2015SE39509

PATIENT
  Age: 0 Day
  Sex: Male
  Weight: 4 kg

DRUGS (6)
  1. CLARITIN [Suspect]
     Active Substance: LORATADINE
     Indication: URTICARIA
     Dosage: FOETAL EXPOSURE DURING PREGNANCY
     Route: 064
     Dates: end: 20141008
  2. CLARITIN [Suspect]
     Active Substance: LORATADINE
     Indication: SEASONAL ALLERGY
     Dosage: FOETAL EXPOSURE DURING PREGNANCY
     Route: 064
     Dates: start: 20141009
  3. CLARITIN [Suspect]
     Active Substance: LORATADINE
     Indication: URTICARIA
     Dosage: FOETAL EXPOSURE DURING PREGNANCY
     Route: 064
     Dates: start: 20141009
  4. CLARITIN [Suspect]
     Active Substance: LORATADINE
     Indication: SEASONAL ALLERGY
     Dosage: FOETAL EXPOSURE DURING PREGNANCY
     Route: 064
     Dates: end: 20141008
  5. SEROQUEL [Suspect]
     Active Substance: QUETIAPINE FUMARATE
     Indication: BIPOLAR DISORDER
     Dosage: STUDY PART PHASE 2 FOETAL EXPOSURE DURING PREGNANCY 150-300 MG DAILY
     Route: 064
     Dates: start: 2014, end: 20141029
  6. PLACEBO [Suspect]
     Active Substance: UNSPECIFIED INGREDIENT
     Indication: BIPOLAR DISORDER
     Dosage: RUN IN PERIOD FOETAL EXPOSURE DURING PREGNANCY
     Route: 064
     Dates: start: 20140526, end: 20140606

REACTIONS (1)
  - Cryptorchism [Not Recovered/Not Resolved]

NARRATIVE: CASE EVENT DATE: 20150329
